FAERS Safety Report 5158805-8 (Version None)
Quarter: 2006Q4

REPORT INFORMATION
  Report Type: 
  Country: None (occurrence: None)
  Receive Date: 20061128
  Receipt Date: 20061115
  Transmission Date: 20070319
  Serious: Yes (Hospitalization, Other)
  Sender: FDA-Public Use
  Company Number: CA-ELI_LILLY_AND_COMPANY-CA200611004152

PATIENT
  Age: 62 Year
  Sex: Male

DRUGS (5)
  1. FORTEO [Suspect]
     Indication: OSTEOPOROSIS
     Dosage: 20 UG, DAILY (1/D)
     Dates: start: 20060508, end: 20061025
  2. VITAMIN D [Concomitant]
  3. CALCIUM [Concomitant]
  4. ARTHROTEC                               /UNK/ [Concomitant]
  5. INDAPAMIDE [Concomitant]

REACTIONS (3)
  - MULTIPLE MYELOMA [None]
  - PAIN [None]
  - RIB FRACTURE [None]
